FAERS Safety Report 5271251-1 (Version None)
Quarter: 2007Q1

REPORT INFORMATION
  Report Type: 
  Country: None (occurrence: None)
  Receive Date: 20061214
  Receipt Date: 20060715
  Transmission Date: 20070707
  Serious: Yes (Other)
  Sender: FDA-Public Use
  Company Number: 2006066766

PATIENT
  Age: 69 Year
  Sex: Female

DRUGS (5)
  1. BEXTRA [Suspect]
     Indication: NERVE INJURY
  2. CELEBREX [Suspect]
     Indication: NERVE INJURY
  3. DARVOCET [Suspect]
     Indication: PAIN
  4. CHLORTHALIDONE [Concomitant]
  5. PAXIL [Concomitant]

REACTIONS (6)
  - DECREASED ACTIVITY [None]
  - DEPRESSION [None]
  - DRUG INEFFECTIVE [None]
  - DRUG INTOLERANCE [None]
  - NAUSEA [None]
  - OBESITY [None]
